FAERS Safety Report 17191663 (Version 1)
Quarter: 2019Q4

REPORT INFORMATION
  Report Type: Spontaneous
  Country: DE (occurrence: AD)
  Receive Date: 20191223
  Receipt Date: 20191223
  Transmission Date: 20200122
  Serious: Yes (Other)
  Sender: FDA-Public Use
  Company Number: DE-TEVA-2019-DE-1155638

PATIENT
  Age: 60 Year
  Sex: Female

DRUGS (6)
  1. QUETIAPINE. [Suspect]
     Active Substance: QUETIAPINE
     Dosage: 100 MG
     Dates: start: 20190701, end: 20190720
  2. EXFORGE 5 MG/160 MG [Concomitant]
     Dosage: 1 GTT
  3. QUETIAPINE. [Suspect]
     Active Substance: QUETIAPINE
     Dates: start: 20190721
  4. PIPAMPERON [Suspect]
     Active Substance: PIPAMPERONE HYDROCHLORIDE
     Dosage: FROM 31.07.2019 CONTINUATION OF THERAPY MI 80MG/THE. 50 MG
     Dates: start: 20190712, end: 20190730
  5. PIPAMPERON [Suspect]
     Active Substance: PIPAMPERONE HYDROCHLORIDE
     Dates: start: 20190701, end: 20190711
  6. GABAPENTIN. [Concomitant]
     Active Substance: GABAPENTIN
     Dosage: 900 MG

REACTIONS (1)
  - Pleurothotonus [Recovered/Resolved]

NARRATIVE: CASE EVENT DATE: 20190720
